FAERS Safety Report 15691748 (Version 1)
Quarter: 2018Q4

REPORT INFORMATION
  Report Type: Report from Study
  Country: CO (occurrence: CO)
  Receive Date: 20181205
  Receipt Date: 20181205
  Transmission Date: 20190205
  Serious: Yes (Life-Threatening, Hospitalization, Other)
  Sender: FDA-Public Use
  Company Number: CO-MYLANLABS-2018M1090079

PATIENT
  Age: 8 Year
  Sex: Male
  Weight: 17 kg

DRUGS (1)
  1. TOBI [Suspect]
     Active Substance: TOBRAMYCIN
     Dosage: 112 MG, Q12H
     Route: 055
     Dates: start: 2016

REACTIONS (10)
  - Drowning [Unknown]
  - Infective pulmonary exacerbation of cystic fibrosis [Unknown]
  - Arrhythmia [Unknown]
  - Cardio-respiratory arrest [Recovering/Resolving]
  - Staphylococcal infection [Recovering/Resolving]
  - Oxygen saturation decreased [Recovering/Resolving]
  - Total lung capacity decreased [Unknown]
  - Headache [Unknown]
  - General physical health deterioration [Unknown]
  - Underweight [Unknown]

NARRATIVE: CASE EVENT DATE: 20180810
